FAERS Safety Report 6120429-3 (Version None)
Quarter: 2009Q1

REPORT INFORMATION
  Report Type: 
  Country: None (occurrence: None)
  Receive Date: 20090317
  Receipt Date: 20090311
  Transmission Date: 20090719
  Serious: Yes (Death, Life-Threatening, Hospitalization)
  Sender: FDA-Public Use
  Company Number: PHHY2009CN08037

PATIENT
  Age: 32 Year
  Sex: Male

DRUGS (3)
  1. SEBIVO [Suspect]
     Dosage: UNK
     Route: 048
  2. HEPSERA [Suspect]
     Dosage: UNK
  3. LAMIVUDINE [Suspect]
     Dosage: UNK

REACTIONS (16)
  - ABDOMINAL DISTENSION [None]
  - BLOOD CREATINE PHOSPHOKINASE INCREASED [None]
  - BLOOD CREATINE PHOSPHOKINASE MB INCREASED [None]
  - BLOOD PRESSURE DECREASED [None]
  - COMA [None]
  - DISSEMINATED INTRAVASCULAR COAGULATION [None]
  - DYSPNOEA [None]
  - GASTROINTESTINAL DISORDER [None]
  - LACTIC ACIDOSIS [None]
  - MULTI-ORGAN FAILURE [None]
  - MYOCARDITIS [None]
  - NAUSEA [None]
  - PALPITATIONS [None]
  - RHABDOMYOLYSIS [None]
  - RIGHT VENTRICULAR FAILURE [None]
  - VOMITING [None]
